FAERS Safety Report 24003125 (Version 1)
Quarter: 2024Q2

REPORT INFORMATION
  Report Type: Spontaneous
  Country: US (occurrence: US)
  Receive Date: 20240624
  Receipt Date: 20240624
  Transmission Date: 20240717
  Serious: No
  Sender: FDA-Public Use
  Company Number: US-SA-SAC20240619000060

PATIENT
  Sex: Female
  Weight: 108.86 kg

DRUGS (6)
  1. DUPIXENT [Suspect]
     Active Substance: DUPILUMAB
     Indication: Drug hypersensitivity
     Dosage: 300 MG, QOW
     Route: 058
  2. DUPIXENT [Suspect]
     Active Substance: DUPILUMAB
     Indication: Analgesic intervention supportive therapy
  3. DUPIXENT [Suspect]
     Active Substance: DUPILUMAB
     Indication: Type 2 diabetes mellitus
  4. DUPIXENT [Suspect]
     Active Substance: DUPILUMAB
     Indication: Skin candida
  5. DUPIXENT [Suspect]
     Active Substance: DUPILUMAB
     Indication: Pain
  6. DUPIXENT [Suspect]
     Active Substance: DUPILUMAB
     Indication: Bone disorder

REACTIONS (3)
  - Insomnia [Unknown]
  - Muscle spasms [Unknown]
  - Product use in unapproved indication [Unknown]
